FAERS Safety Report 5374645-9 (Version None)
Quarter: 2007Q2

REPORT INFORMATION
  Report Type: 
  Country: None (occurrence: None)
  Receive Date: 20070627
  Receipt Date: 20070627
  Transmission Date: 20071010
  Serious: No
  Sender: FDA-Public Use
  Company Number: None

PATIENT
  Age: 87 Year
  Sex: Male

DRUGS (2)
  1. VENLAFAXINE HCL [Suspect]
     Indication: DEPRESSION
     Dosage: 75MG  EVERY DAY  PO
     Route: 048
     Dates: start: 20070507, end: 20070530
  2. VENLAFAXINE HCL [Suspect]
     Indication: NEUROPATHY
     Dosage: 75MG  EVERY DAY  PO
     Route: 048
     Dates: start: 20070507, end: 20070530

REACTIONS (1)
  - RASH [None]
